FAERS Safety Report 16770436 (Version 2)
Quarter: 2019Q3

REPORT INFORMATION
  Report Type: Spontaneous
  Country: JP (occurrence: JP)
  Receive Date: 20190904
  Receipt Date: 20190919
  Transmission Date: 20191005
  Serious: Yes (Hospitalization)
  Sender: FDA-Public Use
  Company Number: JP-GLAXOSMITHKLINE-JP2019JPN152095

PATIENT
  Age: 40 Year
  Sex: Female
  Weight: 50 kg

DRUGS (4)
  1. DEPAKENE (VALPROATE SODIUM) [Concomitant]
     Dosage: UNK
     Dates: start: 201908
  2. PLANOVAR [Suspect]
     Active Substance: ETHINYL ESTRADIOL\NORGESTREL
     Indication: METRORRHAGIA
     Dosage: 1 DF, 1D
     Route: 048
     Dates: start: 201908, end: 201908
  3. LAMICTAL [Suspect]
     Active Substance: LAMOTRIGINE
     Indication: EPILEPSY
     Dosage: 100 MG, QD
     Route: 048
     Dates: start: 20181109, end: 20190828
  4. DEPAKENE (VALPROATE SODIUM) [Concomitant]
     Indication: EPILEPSY
     Dosage: UNK
     Dates: end: 20181108

REACTIONS (5)
  - Prescribed overdose [Unknown]
  - Product use issue [Unknown]
  - Nausea [Unknown]
  - Metrorrhagia [Not Recovered/Not Resolved]
  - Anaemia [Unknown]

NARRATIVE: CASE EVENT DATE: 201908
